FAERS Safety Report 5895937-0 (Version None)
Quarter: 2008Q3

REPORT INFORMATION
  Report Type: 
  Country: None (occurrence: None)
  Receive Date: 20080924
  Receipt Date: 20080917
  Transmission Date: 20090109
  Serious: No
  Sender: FDA-Public Use
  Company Number: US-B.I. PHARMACEUTICALS,INC./RIDGEFIELD-2008-BP-11412BP

PATIENT
  Sex: Female

DRUGS (6)
  1. MICARDIS [Suspect]
     Indication: BLOOD PRESSURE
     Dosage: 80MG
  2. MICARDIS [Suspect]
     Indication: HYPERTENSION
  3. DIURETIC [Concomitant]
  4. WELCHOL [Concomitant]
     Dosage: 1250MG
  5. ASPIRIN [Concomitant]
  6. HYDROCHLOROTHIAZIDE [Concomitant]

REACTIONS (3)
  - DYSGEUSIA [None]
  - DYSPEPSIA [None]
  - FREQUENT BOWEL MOVEMENTS [None]
